FAERS Safety Report 8781205 (Version 1)
Quarter: 2012Q4

REPORT INFORMATION
  Report Type: 
  Country: US (occurrence: US)
  Receive Date: 20120913
  Receipt Date: 20120913
  Transmission Date: 20130627
  Serious: No
  Sender: FDA-Public Use
  Company Number: US-VERTEX PHARMACEUTICAL INC.-AE-2012-007308

PATIENT
  Age: 52 Year
  Sex: Female
  Weight: 106 kg

DRUGS (6)
  1. VX-950 [Suspect]
     Indication: HEPATITIS C
     Dosage: 750 mg, tid
     Route: 048
     Dates: start: 20120419
  2. PEGASYS [Concomitant]
     Indication: HEPATITIS C
     Route: 058
     Dates: start: 20120419
  3. RIBAVIRIN [Concomitant]
     Indication: HEPATITIS C
     Dosage: 600 mg, bid
     Route: 048
     Dates: start: 20120419
  4. RIBAVIRIN [Concomitant]
     Dosage: 800 mg, qd
  5. REGLAN [Concomitant]
  6. IBUPROFEN [Concomitant]

REACTIONS (9)
  - White blood cell count decreased [Unknown]
  - Upper respiratory tract infection [Unknown]
  - Insomnia [Unknown]
  - Fatigue [Unknown]
  - Asthenia [Unknown]
  - Rash erythematous [Recovered/Resolved]
  - Red blood cell count decreased [Unknown]
  - Nausea [Unknown]
  - Pruritus [Unknown]
